FAERS Safety Report 7585470-2 (Version None)
Quarter: 2011Q3

REPORT INFORMATION
  Report Type: 
  Country: None (occurrence: None)
  Receive Date: 20110701
  Receipt Date: 20110623
  Transmission Date: 20111222
  Serious: Yes (Hospitalization, Other)
  Sender: FDA-Public Use
  Company Number: US-BAYER-201039690NA

PATIENT
  Age: 31 Year
  Sex: Female
  Weight: 84 kg

DRUGS (4)
  1. ASCORBIC ACID [Concomitant]
  2. IBUPROFEN [Concomitant]
  3. SYNTHROID [Concomitant]
  4. YASMIN [Suspect]
     Indication: PRODUCT USED FOR UNKNOWN INDICATION
     Route: 048

REACTIONS (3)
  - THROMBOSIS [None]
  - DEEP VEIN THROMBOSIS [None]
  - PULMONARY EMBOLISM [None]
